FAERS Safety Report 6729223-3 (Version None)
Quarter: 2010Q2

REPORT INFORMATION
  Report Type: 
  Country: None (occurrence: None)
  Receive Date: 20100517
  Receipt Date: 20100426
  Transmission Date: 20101027
  Serious: No
  Sender: FDA-Public Use
  Company Number: US-ABBOTT-10P-163-0640868-00

PATIENT
  Sex: Female
  Weight: 82.628 kg

DRUGS (6)
  1. SIMCOR [Suspect]
     Indication: BLOOD TRIGLYCERIDES INCREASED
     Dosage: 500/20MG AT BEDTIME
     Dates: start: 20100412
  2. SIMCOR [Suspect]
     Indication: BLOOD CHOLESTEROL INCREASED
  3. GLYBURIDE [Concomitant]
     Indication: DRUG USE FOR UNKNOWN INDICATION
     Dosage: 40MG TWICE A DAY
  4. JANUMENT [Concomitant]
     Indication: DRUG USE FOR UNKNOWN INDICATION
     Dosage: 50/1000MG TWICE DAILY
  5. FLEXERIL [Concomitant]
     Indication: DRUG USE FOR UNKNOWN INDICATION
     Dosage: 20MG AT BEDTIME
  6. ALBUTEROL [Concomitant]
     Indication: DRUG USE FOR UNKNOWN INDICATION
     Dosage: 2 PUFFS AS NEEDED

REACTIONS (3)
  - BACK PAIN [None]
  - GENERALISED ERYTHEMA [None]
  - PRURITUS GENERALISED [None]
